FAERS Safety Report 16908153 (Version 1)
Quarter: 2019Q4

REPORT INFORMATION
  Report Type: Spontaneous
  Country: IT (occurrence: IT)
  Receive Date: 20191011
  Receipt Date: 20191011
  Transmission Date: 20200122
  Serious: Yes (Hospitalization)
  Sender: FDA-Public Use
  Company Number: IT-PFIZER INC-2019440295

PATIENT
  Age: 69 Year
  Sex: Female

DRUGS (1)
  1. ALPRAZOLAM. [Suspect]
     Active Substance: ALPRAZOLAM
     Dosage: 7 MG, UNK
     Route: 048

REACTIONS (2)
  - Sopor [Unknown]
  - Substance abuse [Unknown]

NARRATIVE: CASE EVENT DATE: 20190424
